FAERS Safety Report 8781773 (Version 1)
Quarter: 2012Q4

REPORT INFORMATION
  Report Type: 
  Country: GB (occurrence: GB)
  Receive Date: 20120913
  Receipt Date: 20120913
  Transmission Date: 20130627
  Serious: Yes (Other)
  Sender: FDA-Public Use
  Company Number: GB-009507513-1209GBR002492

PATIENT

DRUGS (1)
  1. IMPLANON [Suspect]

REACTIONS (3)
  - Abortion spontaneous [Unknown]
  - Polycystic ovaries [Unknown]
  - Unintended pregnancy [Unknown]
